FAERS Safety Report 21020672 (Version 2)
Quarter: 2022Q3

REPORT INFORMATION
  Report Type: Spontaneous
  Country: IL (occurrence: IL)
  Receive Date: 20220629
  Receipt Date: 20220708
  Transmission Date: 20221026
  Serious: Yes (Hospitalization)
  Sender: FDA-Public Use
  Company Number: IL-BIOVITRUM-2022IL08103

PATIENT
  Sex: Female

DRUGS (2)
  1. KINERET [Suspect]
     Active Substance: ANAKINRA
     Indication: Osteitis
     Dosage: 100 MG SOLUTION FOR INJECTION
  2. KINERET [Suspect]
     Active Substance: ANAKINRA
     Indication: Osteomyelitis

REACTIONS (4)
  - Swelling [Recovered/Resolved]
  - Pain [Recovered/Resolved]
  - Oedema [Recovered/Resolved]
  - Off label use [Unknown]
